FAERS Safety Report 5863860-3 (Version None)
Quarter: 2008Q3

REPORT INFORMATION
  Report Type: 
  Country: None (occurrence: None)
  Receive Date: 20080827
  Receipt Date: 20080808
  Transmission Date: 20090109
  Serious: Yes (Hospitalization, Other)
  Sender: FDA-Public Use
  Company Number: 1000000541

PATIENT
  Age: 80 Year
  Sex: Female

DRUGS (9)
  1. CITALOPRAM HYDROBROMIDE [Suspect]
     Indication: PANIC ATTACK
     Dosage: 20 MG
  2. AMLODIPINE [Concomitant]
  3. NITRGLYCERIN TRANSDERMAL SYSTEM [Concomitant]
  4. WARFARIN SODIUM [Concomitant]
  5. ISOSORBIDE DINITRATE [Concomitant]
  6. ALDACTAZIDE-A [Concomitant]
  7. SIMVASTATIN [Concomitant]
  8. ACETYLSALICYLIC ACID SRT [Concomitant]
  9. DIGOXIN [Concomitant]

REACTIONS (9)
  - ATRIAL FIBRILLATION [None]
  - CHEST DISCOMFORT [None]
  - CONTUSION [None]
  - DELIRIUM [None]
  - DISTURBANCE IN ATTENTION [None]
  - DIZZINESS [None]
  - DRUG INTERACTION [None]
  - FALL [None]
  - HEART RATE DECREASED [None]
